FAERS Safety Report 24117954 (Version 1)
Quarter: 2024Q3

REPORT INFORMATION
  Report Type: Spontaneous
  Country: FR (occurrence: None)
  Receive Date: 20240722
  Receipt Date: 20240722
  Transmission Date: 20241017
  Serious: Yes (Hospitalization)
  Sender: ORION
  Company Number: None

PATIENT
  Age: 84 Year
  Sex: Female
  Weight: 48.5 kg

DRUGS (7)
  1. METHOTREXATE [Suspect]
     Active Substance: METHOTREXATE
     Indication: Rheumatoid arthritis
     Dates: start: 2016
  2. ATACAND [Suspect]
     Active Substance: CANDESARTAN CILEXETIL
     Indication: Product used for unknown indication
  3. PREDNISONE [Suspect]
     Active Substance: PREDNISONE
     Indication: Product used for unknown indication
  4. OMEPRAZOLE [Suspect]
     Active Substance: OMEPRAZOLE
     Indication: Product used for unknown indication
     Dates: start: 2016
  5. ORENCIA [Suspect]
     Active Substance: ABATACEPT
     Indication: Rheumatoid arthritis
     Dosage: 500 MILLIGRAM
     Dates: start: 20171222
  6. ACTONEL [Suspect]
     Active Substance: RISEDRONATE SODIUM
     Indication: Osteoporosis
     Dates: start: 2017
  7. FOLIC ACID [Concomitant]
     Active Substance: FOLIC ACID

REACTIONS (1)
  - Atypical femur fracture [Recovering/Resolving]

NARRATIVE: CASE EVENT DATE: 20231018
